FAERS Safety Report 6650119-X (Version None)
Quarter: 2010Q1

REPORT INFORMATION
  Report Type: 
  Country: None (occurrence: None)
  Receive Date: 20100325
  Receipt Date: 20091026
  Transmission Date: 20100710
  Serious: No
  Sender: FDA-Public Use
  Company Number: US-KINGPHARMUSA00001-K200901328

PATIENT
  Age: 55 Year
  Sex: Female

DRUGS (18)
  1. ALTACE [Suspect]
     Indication: ESSENTIAL HYPERTENSION
     Dosage: 10 MG, QD
     Route: 048
     Dates: start: 20080522
  2. MUCINEX D [Concomitant]
  3. DEMEROL APAP [Concomitant]
  4. ROMAZICON [Concomitant]
  5. LYSINE [Concomitant]
  6. CALCIUM [Concomitant]
  7. MULTI-VIT [Concomitant]
  8. ACYCLOVIR [Concomitant]
  9. BENZONATATE [Concomitant]
  10. NASONEX [Concomitant]
  11. CLARINEX [Concomitant]
  12. MERIEUX FLU VACCINE [Concomitant]
  13. PROGESTERONE [Concomitant]
  14. ACTONEL [Concomitant]
  15. NARCAN [Concomitant]
  16. LORATADINE [Concomitant]
  17. MIDAZOLAM HCL [Concomitant]
  18. TYLENOL-500 [Concomitant]

REACTIONS (2)
  - ADENOMATOUS POLYPOSIS COLI [None]
  - COLONIC POLYP [None]
